FAERS Safety Report 5238500-7 (Version None)
Quarter: 2007Q1

REPORT INFORMATION
  Report Type: 
  Country: None (occurrence: None)
  Receive Date: 20070215
  Receipt Date: 20070207
  Transmission Date: 20070707
  Serious: Yes (Other)
  Sender: FDA-Public Use
  Company Number: AU-JNJFOC-20070203234

PATIENT
  Sex: Female

DRUGS (6)
  1. TRAMADOL HCL [Suspect]
     Indication: HEADACHE
     Route: 065
  2. NIZORAL [Suspect]
     Indication: CANDIDIASIS
     Route: 065
  3. CAFERGOT [Suspect]
     Indication: MIGRAINE
     Route: 065
  4. MERSYNDOL [Suspect]
     Indication: MIGRAINE
     Route: 065
  5. EFFEXOR [Suspect]
     Indication: DRUG USE FOR UNKNOWN INDICATION
     Route: 065
  6. ACETAMINOPHEN W/ CODEINE [Suspect]
     Indication: MIGRAINE
     Route: 065

REACTIONS (1)
  - CONVULSION [None]
